FAERS Safety Report 6139442-5 (Version None)
Quarter: 2009Q2

REPORT INFORMATION
  Report Type: 
  Country: None (occurrence: None)
  Receive Date: 20090401
  Receipt Date: 20090327
  Transmission Date: 20091009
  Serious: Yes (Death, Other)
  Sender: FDA-Public Use
  Company Number: PHHY2009FR11897

PATIENT
  Age: 33 Year
  Sex: Male

DRUGS (5)
  1. CYCLOSPORINE [Suspect]
     Indication: ALLOGENIC BONE MARROW TRANSPLANTATION THERAPY
  2. CYCLOPHOSPHAMIDE [Concomitant]
  3. IRRADIATION [Concomitant]
  4. STEROIDS NOS [Concomitant]
  5. ANTI-THYMOCYTE GLOBULIN NOS [Concomitant]

REACTIONS (3)
  - ACUTE GRAFT VERSUS HOST DISEASE [None]
  - CHRONIC GRAFT VERSUS HOST DISEASE [None]
  - LIP AND/OR ORAL CAVITY CANCER [None]
